FAERS Safety Report 4477395-6 (Version None)
Quarter: 2004Q4

REPORT INFORMATION
  Report Type: 
  Country: None (occurrence: None)
  Receive Date: 20041018
  Receipt Date: 20040821
  Transmission Date: 20050328
  Serious: Yes (Hospitalization)
  Sender: FDA-Public Use
  Company Number: AU-BRISTOL-MYERS SQUIBB COMPANY-12679098

PATIENT
  Age: 42 Year
  Sex: Male

DRUGS (5)
  1. ATAZANAVIR [Suspect]
     Indication: HIV INFECTION
     Route: 048
     Dates: start: 20030812
  2. FUZEON [Suspect]
     Indication: HIV INFECTION
     Route: 058
     Dates: start: 20030812
  3. DIDANOSINE [Concomitant]
     Indication: HIV INFECTION
     Dates: start: 20030812
  4. TENOFOVIR [Concomitant]
     Indication: HIV INFECTION
     Dates: start: 20030812
  5. RITONAVIR [Concomitant]
     Indication: HIV INFECTION
     Dates: start: 20030812

REACTIONS (3)
  - INGROWING NAIL [None]
  - NEUTROPENIA [None]
  - OSTEOMYELITIS [None]
